FAERS Safety Report 13619479 (Version 1)
Quarter: 2017Q2

REPORT INFORMATION
  Report Type: Spontaneous
  Country: US (occurrence: US)
  Receive Date: 20170606
  Receipt Date: 20170606
  Transmission Date: 20170830
  Serious: Yes (Other)
  Sender: FDA-Public Use
  Company Number: None

PATIENT
  Age: 69 Year
  Sex: Female
  Weight: 47.25 kg

DRUGS (10)
  1. IPROTROPIUM BROMIDE NASAL [Concomitant]
  2. BIOTIN [Concomitant]
     Active Substance: BIOTIN
  3. BUPROPION. [Concomitant]
     Active Substance: BUPROPION
  4. LORAZEPAM. [Concomitant]
     Active Substance: LORAZEPAM
  5. RANITIDINE. [Concomitant]
     Active Substance: RANITIDINE
  6. FORTEO [Suspect]
     Active Substance: TERIPARATIDE
     Indication: OSTEOPOROSIS
     Dosage: OTHER ROUTE:INJECTED AROUND ABDOMEN?
  7. VITAMIN D [Concomitant]
     Active Substance: CHOLECALCIFEROL
  8. 10 STRAIN PROBIOTIC [Concomitant]
  9. CALCIUM CITRATE [Concomitant]
     Active Substance: CALCIUM CITRATE
  10. SERTRALINE [Concomitant]
     Active Substance: SERTRALINE HYDROCHLORIDE

REACTIONS (1)
  - Chronic kidney disease [None]

NARRATIVE: CASE EVENT DATE: 20111118
